FAERS Safety Report 4328095-4 (Version None)
Quarter: 2004Q1

REPORT INFORMATION
  Report Type: 
  Country: None (occurrence: None)
  Receive Date: 20040331
  Receipt Date: 20040326
  Transmission Date: 20041129
  Serious: Yes (Other)
  Sender: FDA-Public Use
  Company Number: JP-ROCHE-362831

PATIENT
  Age: 62 Year
  Sex: Male

DRUGS (7)
  1. MIDAZOLAM HCL [Suspect]
     Indication: DRUG USE FOR UNKNOWN INDICATION
     Route: 041
     Dates: start: 20031227, end: 20031228
  2. SERENASE [Suspect]
     Indication: DRUG USE FOR UNKNOWN INDICATION
     Route: 041
     Dates: start: 20031227, end: 20031228
  3. SOLINASE [Concomitant]
     Indication: ACUTE MYOCARDIAL INFARCTION
     Route: 041
     Dates: start: 20031222, end: 20031222
  4. HEPARIN [Concomitant]
     Dosage: DOSE REPORTED AS 3000 DAILY
     Route: 042
     Dates: start: 20031222, end: 20040122
  5. MORPHINE [Concomitant]
     Route: 042
     Dates: start: 20031222, end: 20040122
  6. LIDOCAINE HYDROCHLORIDE [Concomitant]
     Route: 042
     Dates: start: 20031222, end: 20040122
  7. NICARDIPINE HYDROCHLORIDE [Concomitant]
     Route: 041
     Dates: start: 20031222, end: 20040122

REACTIONS (1)
  - HYPERTHERMIA MALIGNANT [None]
